FAERS Safety Report 25012126 (Version 1)
Quarter: 2025Q1

REPORT INFORMATION
  Report Type: Spontaneous
  Country: IN (occurrence: IN)
  Receive Date: 20250226
  Receipt Date: 20250226
  Transmission Date: 20250408
  Serious: Yes (Other)
  Sender: BAXTER
  Company Number: IN-BAXTER-2022BAX030567

PATIENT

DRUGS (2)
  1. HEPARIN SODIUM [Suspect]
     Active Substance: HEPARIN SODIUM
     Indication: Myocardial infarction
     Route: 065
  2. TIROFIBAN [Suspect]
     Active Substance: TIROFIBAN
     Indication: Myocardial infarction
     Route: 065

REACTIONS (3)
  - Spinal epidural haemorrhage [Recovered/Resolved]
  - Back pain [Recovered/Resolved]
  - Paraparesis [Recovered/Resolved]
